FAERS Safety Report 24888056 (Version 1)
Quarter: 2025Q1

REPORT INFORMATION
  Report Type: Spontaneous
  Country: BR (occurrence: BR)
  Receive Date: 20250127
  Receipt Date: 20250127
  Transmission Date: 20250408
  Serious: Yes (Hospitalization, Other)
  Sender: SANOFI AVENTIS
  Company Number: BR-SA-2025SA021342

PATIENT
  Sex: Female

DRUGS (2)
  1. LANTUS [Suspect]
     Active Substance: INSULIN GLARGINE
     Indication: Type 1 diabetes mellitus
     Dosage: 8 UNITS IN THE MORNING, 9 UNITS IN THE EVENING
     Route: 065
     Dates: start: 2015
  2. NOVORAPID [Concomitant]
     Active Substance: INSULIN ASPART
     Indication: Diabetes mellitus
     Dosage: BEFORE BREAKFAST LUNCH SNACK DINNER AFTER DINNER SNACK, QD

REACTIONS (5)
  - Diabetic metabolic decompensation [Recovering/Resolving]
  - Expired device used [Recovering/Resolving]
  - Device mechanical issue [Unknown]
  - Maternal exposure during pregnancy [Unknown]
  - Inappropriate schedule of product administration [Unknown]

NARRATIVE: CASE EVENT DATE: 20150101
